FAERS Safety Report 17745281 (Version 3)
Quarter: 2020Q2

REPORT INFORMATION
  Report Type: Spontaneous
  Country: BR (occurrence: BR)
  Receive Date: 20200504
  Receipt Date: 20200511
  Transmission Date: 20200714
  Serious: Yes (Disabling, Other)
  Sender: FDA-Public Use
  Company Number: BR-CELLTRION INC.-2019BR027322

PATIENT

DRUGS (4)
  1. REMSIMA [Suspect]
     Active Substance: INFLIXIMAB
     Dosage: AFTER THE BREAK DOUBLED THE DOSAGE TO 9 AMPOULES
     Route: 065
  2. REMSIMA [Suspect]
     Active Substance: INFLIXIMAB
     Dosage: 10 MG/ML, UNK
     Route: 065
     Dates: start: 201907, end: 201912
  3. REMSIMA [Suspect]
     Active Substance: INFLIXIMAB
     Indication: COLITIS
     Dosage: 10 MG/ML, UNK
     Route: 065
     Dates: start: 201907, end: 201910
  4. REMSIMA [Suspect]
     Active Substance: INFLIXIMAB
     Dosage: RESUMED TREATMENT WITH REMSIMA (10 MG PER ML IN 4.5 AMPOULES)
     Route: 065

REACTIONS (12)
  - Vomiting [Not Recovered/Not Resolved]
  - Condition aggravated [Unknown]
  - Therapeutic product effect incomplete [Unknown]
  - Gait disturbance [Unknown]
  - Asthenia [Unknown]
  - Frequent bowel movements [Not Recovered/Not Resolved]
  - Diarrhoea [Unknown]
  - Weight decreased [Not Recovered/Not Resolved]
  - Dysstasia [Unknown]
  - Pain [Not Recovered/Not Resolved]
  - Blood pressure decreased [Unknown]
  - Therapy non-responder [Unknown]
